FAERS Safety Report 19911410 (Version 1)
Quarter: 2021Q4

REPORT INFORMATION
  Report Type: Report from Study
  Country: US (occurrence: US)
  Receive Date: 20211004
  Receipt Date: 20211004
  Transmission Date: 20220303
  Serious: Yes (Hospitalization, Other)
  Sender: FDA-Public Use
  Company Number: US-GILEAD-2021-0550581

PATIENT
  Age: 42 Year
  Sex: Male

DRUGS (4)
  1. AZTREONAM LYSINE [Suspect]
     Active Substance: AZTREONAM LYSINE
     Indication: Cystic fibrosis
     Dosage: 1 ML, TID, FOR 28 DAYS EVERY OTHER MONTH
     Route: 055
     Dates: start: 20130830
  2. TOBRAMYCIN [Concomitant]
     Active Substance: TOBRAMYCIN
  3. PREDNISONE [Concomitant]
     Active Substance: PREDNISONE
  4. PULMOZYME [Concomitant]
     Active Substance: DORNASE ALFA

REACTIONS (1)
  - Cystic fibrosis [Unknown]

NARRATIVE: CASE EVENT DATE: 20210907
